FAERS Safety Report 25670667 (Version 3)
Quarter: 2025Q3

REPORT INFORMATION
  Report Type: Spontaneous
  Country: EU (occurrence: EU)
  Receive Date: 20250812
  Receipt Date: 20250902
  Transmission Date: 20251020
  Serious: Yes (Hospitalization, Other)
  Sender: AUROBINDO
  Company Number: EU-SA-2025SA211081

PATIENT
  Age: 42 Year
  Sex: Female
  Weight: 58 kg

DRUGS (17)
  1. DOCETAXEL [Suspect]
     Active Substance: DOCETAXEL
     Indication: Non-small cell lung cancer
     Route: 042
     Dates: start: 20250701
  2. TELISOTUZUMAB VEDOTIN [Suspect]
     Active Substance: TELISOTUZUMAB VEDOTIN
     Indication: Non-small cell lung cancer
     Route: 065
  3. FOLIC ACID [Concomitant]
     Active Substance: FOLIC ACID
     Indication: Prophylaxis
     Dosage: 5 MILLIGRAM, ONCE A DAY
     Route: 065
     Dates: start: 20241101
  4. METAMIZOLE [Concomitant]
     Active Substance: METAMIZOLE
     Indication: Tumour pain
     Route: 065
     Dates: start: 20241101
  5. PANTOPRAZOLE [Concomitant]
     Active Substance: PANTOPRAZOLE
     Indication: Prophylaxis
     Dosage: 40 MILLIGRAM, ONCE A DAY
     Route: 065
     Dates: start: 20241101
  6. ALBUTEROL [Concomitant]
     Active Substance: ALBUTEROL
     Indication: Asthma
     Dates: start: 19840101
  7. VITAMIN D3 [Concomitant]
     Active Substance: CHOLECALCIFEROL
     Indication: Prophylaxis
     Dosage: 3000 INTERNATIONAL UNIT, ONCE A DAY
     Route: 065
     Dates: start: 20241101
  8. CALCIUM [Concomitant]
     Active Substance: CALCIUM
     Indication: Prophylaxis
     Route: 065
     Dates: start: 20241101
  9. ZINC [Concomitant]
     Active Substance: ZINC
     Indication: Prophylaxis
     Route: 065
     Dates: start: 20241101
  10. OMEGA 3 [Concomitant]
     Active Substance: CAPSAICIN
     Indication: Prophylaxis
     Dosage: 585 MILLIGRAM, ONCE A DAY
     Route: 065
     Dates: start: 20241101
  11. MAGNESIUM [Concomitant]
     Active Substance: MAGNESIUM
     Indication: Prophylaxis
     Route: 065
     Dates: start: 20241101
  12. DIETARY SUPPLEMENT\HERBALS\MILK THISTLE [Concomitant]
     Active Substance: MILK THISTLE
     Indication: Prophylaxis
     Dosage: 140 MG, Q8H
     Route: 065
     Dates: start: 20241101
  13. SELENIUM [Concomitant]
     Active Substance: SELENIUM
     Indication: Prophylaxis
     Route: 065
     Dates: start: 20241101
  14. Coenzym q10 [Concomitant]
     Indication: Prophylaxis
     Route: 065
     Dates: start: 20241101
  15. PREGABALIN [Concomitant]
     Active Substance: PREGABALIN
     Indication: Tumour pain
     Dosage: 50 MILLIGRAM, TWO TIMES A DAY (50 MG, Q12H)
     Route: 065
     Dates: start: 20241101
  16. LEVOTHYROXINE SODIUM [Concomitant]
     Active Substance: LEVOTHYROXINE SODIUM
     Indication: Goitre
     Dosage: 0.15 MILLIGRAM, ONCE A DAY
     Route: 065
     Dates: start: 20240301
  17. HYDROMORPHONE HYDROCHLORIDE [Concomitant]
     Active Substance: HYDROMORPHONE HYDROCHLORIDE
     Indication: Tumour pain
     Dosage: 2 MILLIGRAM, TWO TIMES A DAY
     Route: 065
     Dates: start: 20241001

REACTIONS (2)
  - Pneumonia [Not Recovered/Not Resolved]
  - Pneumonia fungal [Not Recovered/Not Resolved]

NARRATIVE: CASE EVENT DATE: 20250709
